FAERS Safety Report 8472065-1 (Version None)
Quarter: 2012Q2

REPORT INFORMATION
  Report Type: 
  Country: None (occurrence: None)
  Receive Date: 20120323
  Receipt Date: 20111006
  Transmission Date: 20120825
  Serious: Yes (Hospitalization, Other)
  Sender: FDA-Public Use
  Company Number: 163-21880-11100756

PATIENT
  Age: 88 Year
  Sex: Female
  Weight: 65.7716 kg

DRUGS (11)
  1. FISH OIL (FISH OIL) [Concomitant]
  2. LISINOPRIL [Concomitant]
  3. DETROL [Concomitant]
  4. TENORMIN [Concomitant]
  5. LASIX [Concomitant]
  6. CALCIUM CARBONATE [Concomitant]
  7. LENALIDOMIDE [Suspect]
     Indication: MYELODYSPLASTIC SYNDROME
     Dosage: PO ; 10 MG, 1 IN 1 D, PO ; 5 MG, TWICE WEEKLY, PO
     Route: 048
     Dates: start: 20100901
  8. LENALIDOMIDE [Suspect]
     Indication: MYELODYSPLASTIC SYNDROME
     Dosage: PO ; 10 MG, 1 IN 1 D, PO ; 5 MG, TWICE WEEKLY, PO
     Route: 048
     Dates: start: 20100601
  9. LENALIDOMIDE [Suspect]
     Indication: MYELODYSPLASTIC SYNDROME
     Dosage: PO ; 10 MG, 1 IN 1 D, PO ; 5 MG, TWICE WEEKLY, PO
     Route: 048
     Dates: start: 20101001
  10. LEVOTHYROID (LEVOTHYROXINE SODIUM) [Concomitant]
  11. MULTIVITAMIN [Concomitant]

REACTIONS (2)
  - FRACTURE [None]
  - GASTROINTESTINAL HAEMORRHAGE [None]
